FAERS Safety Report 18784210 (Version 2)
Quarter: 2021Q2

REPORT INFORMATION
  Report Type: Report from Study
  Country: IN (occurrence: IN)
  Receive Date: 20210126
  Receipt Date: 20210430
  Transmission Date: 20210717
  Serious: Yes (Death, Hospitalization)
  Sender: FDA-Public Use
  Company Number: IN-BIOGEN-2021BI00969710

PATIENT
  Age: 68 Year
  Sex: Male

DRUGS (1)
  1. TECFIDERA [Suspect]
     Active Substance: DIMETHYL FUMARATE
     Indication: MULTIPLE SCLEROSIS
     Route: 048
     Dates: start: 20200309, end: 20210217

REACTIONS (2)
  - Pneumonia bacterial [Not Recovered/Not Resolved]
  - Cardiac arrest [Fatal]

NARRATIVE: CASE EVENT DATE: 20201124
